FAERS Safety Report 7233180-3 (Version None)
Quarter: 2011Q1

REPORT INFORMATION
  Report Type: 
  Country: None (occurrence: None)
  Receive Date: 20110119
  Receipt Date: 20110103
  Transmission Date: 20110831
  Serious: Yes (Hospitalization)
  Sender: FDA-Public Use
  Company Number: A0806201A

PATIENT
  Age: 73 Year
  Sex: Male

DRUGS (10)
  1. NEURONTIN [Concomitant]
  2. ATENOLOL [Concomitant]
  3. ALPRAZOLAM [Concomitant]
  4. PAXIL [Concomitant]
  5. AVANDIA [Suspect]
     Indication: DIABETES MELLITUS
     Dosage: 8MG PER DAY
     Route: 048
     Dates: start: 19991102
  6. GLUCOPHAGE [Concomitant]
  7. ZESTRIL [Concomitant]
  8. VERAPAMIL [Concomitant]
  9. GLYBURIDE [Concomitant]
  10. ASPIRIN [Concomitant]

REACTIONS (3)
  - ATRIAL FIBRILLATION [None]
  - MYOCARDIAL INFARCTION [None]
  - SICK SINUS SYNDROME [None]
